FAERS Safety Report 10695588 (Version 4)
Quarter: 2021Q4

REPORT INFORMATION
  Report Type: Report from Study
  Country: GB (occurrence: GB)
  Receive Date: 20150107
  Receipt Date: 20211201
  Transmission Date: 20220303
  Serious: Yes (Hospitalization, Other)
  Sender: FDA-Public Use
  Company Number: GB-SHIRE-GB201500037

PATIENT
  Age: 20 Year
  Sex: Male

DRUGS (2)
  1. IDURSULFASE [Suspect]
     Active Substance: IDURSULFASE
     Indication: Mucopolysaccharidosis II
     Dosage: UNK, 1X/WEEK
     Route: 041
     Dates: start: 20050521
  2. IDURSULFASE [Suspect]
     Active Substance: IDURSULFASE
     Dosage: 0.46 MG/KG, 1X/WEEK
     Route: 042
     Dates: start: 20140115, end: 20141228

REACTIONS (2)
  - Surgery [Unknown]
  - Laryngeal stenosis [Recovered/Resolved]

NARRATIVE: CASE EVENT DATE: 20141023
